FAERS Safety Report 25919245 (Version 5)
Quarter: 2025Q4

REPORT INFORMATION
  Report Type: Spontaneous
  Country: EU (occurrence: EU)
  Receive Date: 20251014
  Receipt Date: 20251210
  Transmission Date: 20260118
  Serious: No
  Sender: PFIZER
  Company Number: EU-PFIZER INC-PV202500120132

PATIENT
  Age: 12 Year
  Sex: Male
  Weight: 30 kg

DRUGS (2)
  1. GENOTROPIN [Suspect]
     Active Substance: SOMATROPIN
     Indication: Hypopituitarism
     Dosage: 1 MG DAILY FOR 6 DAYS AND 0.4 MG FOR 1 DAY
     Route: 058
     Dates: start: 202312
  2. GENOTROPIN [Suspect]
     Active Substance: SOMATROPIN
     Dosage: 1 MG DAILY FOR 6 DAYS AND 0.4 MG FOR 1 DAY
     Route: 058
     Dates: start: 202312

REACTIONS (3)
  - Drug dose omission by device [Recovered/Resolved]
  - Device breakage [Recovered/Resolved]
  - Device use error [Recovered/Resolved]

NARRATIVE: CASE EVENT DATE: 20251007
